FAERS Safety Report 9245464 (Version 1)
Quarter: 2013Q2

REPORT INFORMATION
  Report Type: Spontaneous
  Country: US (occurrence: US)
  Receive Date: 20130422
  Receipt Date: 20130422
  Transmission Date: 20140414
  Serious: Yes (Other)
  Sender: FDA-Public Use
  Company Number: US-BRISTOL-MYERS SQUIBB COMPANY-18783837

PATIENT
  Age: 77 Year
  Sex: Female
  Weight: 87.98 kg

DRUGS (3)
  1. BYETTA [Suspect]
     Indication: TYPE 2 DIABETES MELLITUS
  2. GLYBURIDE + METFORMIN HCL TABS [Suspect]
  3. GLYBURIDE [Suspect]

REACTIONS (7)
  - Blood glucose decreased [Unknown]
  - Myocardial infarction [Unknown]
  - Glaucoma [Unknown]
  - Blindness unilateral [Unknown]
  - Blood glucose increased [Unknown]
  - Weight decreased [Unknown]
  - Rhinorrhoea [Unknown]
